FAERS Safety Report 5481666-4 (Version None)
Quarter: 2007Q4

REPORT INFORMATION
  Report Type: 
  Country: None (occurrence: None)
  Receive Date: 20071010
  Receipt Date: 20070930
  Transmission Date: 20080405
  Serious: Yes (Hospitalization)
  Sender: FDA-Public Use
  Company Number: FR-BRISTOL-MYERS SQUIBB COMPANY-13926910

PATIENT
  Age: 65 Year
  Sex: Male

DRUGS (1)
  1. LYSODREN [Suspect]
     Indication: ADRENOCORTICAL CARCINOMA
     Dosage: 3G/DAY TO 5.5G/DAY.ON 13-SEP-2007 RESTARTED WITH LOSER DOSE.
     Dates: start: 20061011

REACTIONS (5)
  - DIZZINESS [None]
  - OVERDOSE [None]
  - PARAPHARYNGEAL ABSCESS [None]
  - SEPSIS [None]
  - WEIGHT DECREASED [None]
